FAERS Safety Report 23999386 (Version 3)
Quarter: 2024Q3

REPORT INFORMATION
  Report Type: Report from Study
  Country: US (occurrence: US)
  Receive Date: 20240621
  Receipt Date: 20240820
  Transmission Date: 20241017
  Serious: Yes (Hospitalization, Other)
  Sender: ACADIA PHARMACEUTICALS
  Company Number: US-ACADIA PHARMACEUTICALS INC.-ACA-2024-TRF-002600

PATIENT
  Age: 16 Year
  Sex: Female
  Weight: 39 kg

DRUGS (2)
  1. DAYBUE [Suspect]
     Active Substance: TROFINETIDE
     Indication: Rett syndrome
     Dosage: 50 MILLILITER, BID
     Route: 048
     Dates: start: 20240525, end: 20240710
  2. DAYBUE [Suspect]
     Active Substance: TROFINETIDE
     Dosage: 25 MILLILITER, BID
     Route: 048
     Dates: start: 20240801

REACTIONS (28)
  - Weight decreased [Recovering/Resolving]
  - Oxygen saturation decreased [Not Recovered/Not Resolved]
  - Heart rate decreased [Not Recovered/Not Resolved]
  - Blood electrolytes decreased [Not Recovered/Not Resolved]
  - Tachycardia [Not Recovered/Not Resolved]
  - Syncope [Not Recovered/Not Resolved]
  - Eosinophilic oesophagitis [Not Recovered/Not Resolved]
  - Protein intolerance [Not Recovered/Not Resolved]
  - Gastroenteritis viral [Unknown]
  - Vomiting [Not Recovered/Not Resolved]
  - Diarrhoea [Not Recovered/Not Resolved]
  - Diarrhoea [Not Recovered/Not Resolved]
  - Vomiting [Not Recovered/Not Resolved]
  - Underdose [Not Recovered/Not Resolved]
  - Dehydration [Not Recovered/Not Resolved]
  - Constipation [Not Recovered/Not Resolved]
  - Fluid intake reduced [Not Recovered/Not Resolved]
  - Weight decreased [Recovering/Resolving]
  - Influenza [Not Recovered/Not Resolved]
  - Lethargy [Not Recovered/Not Resolved]
  - Insomnia [Not Recovered/Not Resolved]
  - Constipation [Not Recovered/Not Resolved]
  - Bowel movement irregularity [Not Recovered/Not Resolved]
  - Pallor [Not Recovered/Not Resolved]
  - Hyperhidrosis [Not Recovered/Not Resolved]
  - Diarrhoea [Not Recovered/Not Resolved]
  - Decreased appetite [Recovered/Resolved]
  - Nasopharyngitis [Not Recovered/Not Resolved]

NARRATIVE: CASE EVENT DATE: 20240501
